FAERS Safety Report 19600909 (Version 1)
Quarter: 2021Q3

REPORT INFORMATION
  Report Type: Spontaneous
  Country: DE (occurrence: DE)
  Receive Date: 20210723
  Receipt Date: 20210723
  Transmission Date: 20211014
  Serious: Yes (Hospitalization)
  Sender: FDA-Public Use
  Company Number: DE-ACCORD-232659

PATIENT
  Age: 59 Year
  Sex: Male

DRUGS (13)
  1. AMOXICLAV 1A PHARMA [Concomitant]
     Active Substance: AMOXICILLIN\CLAVULANIC ACID
     Dosage: 125/875 MG, 1?0?1?0, TABLET
     Route: 048
  2. PREDNISOLONE. [Suspect]
     Active Substance: PREDNISOLONE
     Indication: PRODUCT USED FOR UNKNOWN INDICATION
     Dosage: 10 MG, 1?0?0?0, TABLET
     Route: 048
  3. ENTRESTO [Suspect]
     Active Substance: SACUBITRIL\VALSARTAN
     Indication: PRODUCT USED FOR UNKNOWN INDICATION
     Dosage: 49MG/51MG MG, 1?0?1?0,  TABLET
     Route: 048
  4. TRULICITY [Concomitant]
     Active Substance: DULAGLUTIDE
     Dosage: 1.5 MG SOLUTION FOR INJECTION IN A PRE?FILLED PEN
     Route: 058
  5. SPIRONOLACTONE. [Suspect]
     Active Substance: SPIRONOLACTONE
     Indication: PRODUCT USED FOR UNKNOWN INDICATION
     Dosage: 50 MG, 1?0?0?0, TABLET
     Route: 048
  6. CYANOCOBALAMIN\PYRIDOXINE\THIAMINE [Concomitant]
     Active Substance: CYANOCOBALAMIN\PYRIDOXINE\THIAMINE
     Dosage: 1?0?0?0, CAPSULE
     Route: 048
  7. TORASEMIDE [Suspect]
     Active Substance: TORSEMIDE
     Indication: PRODUCT USED FOR UNKNOWN INDICATION
     Dosage: 50 MG, 1?0?0?0, TABLET
     Route: 048
  8. METOPROLOL. [Concomitant]
     Active Substance: METOPROLOL
     Dosage: 95 MG, 1?0?1?0, PROLONGED?RELEASE TABLET
     Route: 048
  9. APIDRA [Concomitant]
     Active Substance: INSULIN GLULISINE
     Dosage: 13?0?0?0, SOLUTION FOR INJECTION / INFUSION 100 UNITS / ML CARTRIDGE
     Route: 058
  10. TOUJEO [Concomitant]
     Active Substance: INSULIN GLARGINE
     Dosage: 300 UNITS / ML SOLOSTAR 1.5ML PEN
     Route: 058
  11. APIXABAN [Suspect]
     Active Substance: APIXABAN
     Indication: PRODUCT USED FOR UNKNOWN INDICATION
     Dosage: 5 MG, 1?0?1?0, TABLET
     Route: 048
  12. XIPAMID [Suspect]
     Active Substance: XIPAMIDE
     Indication: PRODUCT USED FOR UNKNOWN INDICATION
     Dosage: 20 MG, 1?0?0?0, TABLET
     Route: 048
  13. AMIODARONE [Concomitant]
     Active Substance: AMIODARONE
     Dosage: 200 MG, 1?0?0?0, TABLET
     Route: 048

REACTIONS (2)
  - Haematemesis [Unknown]
  - Anal haemorrhage [Unknown]

NARRATIVE: CASE EVENT DATE: 20210428
